FAERS Safety Report 5747901-X (Version None)
Quarter: 2008Q2

REPORT INFORMATION
  Report Type: 
  Country: None (occurrence: None)
  Receive Date: 20080523
  Receipt Date: 20080515
  Transmission Date: 20081010
  Serious: Yes (Life-Threatening)
  Sender: FDA-Public Use
  Company Number: FR-ABBOTT-08P-056-0452254-00

PATIENT
  Sex: Female

DRUGS (10)
  1. DEPAKOTE [Suspect]
     Indication: BIPOLAR I DISORDER
     Route: 048
     Dates: start: 20080410, end: 20080418
  2. PHENOBARBITAL TAB [Suspect]
     Indication: EPILEPSY
     Route: 048
  3. OXAZEPAM [Suspect]
     Indication: DRUG DEPENDENCE
     Route: 048
     Dates: start: 20080418, end: 20080418
  4. MADOPAR [Suspect]
     Indication: PARKINSON'S DISEASE
     Route: 048
     Dates: end: 20080418
  5. STALEVO 100 [Suspect]
     Indication: PARKINSON'S DISEASE
     Route: 048
     Dates: end: 20080418
  6. LITHIUM CARBONATE [Concomitant]
     Indication: DRUG USE FOR UNKNOWN INDICATION
     Route: 048
     Dates: end: 20080331
  7. HALOPERIDOL [Concomitant]
     Indication: DRUG USE FOR UNKNOWN INDICATION
     Route: 048
     Dates: end: 20080331
  8. NADROPARIN CALCIUM [Concomitant]
     Indication: DRUG USE FOR UNKNOWN INDICATION
     Route: 058
  9. LEVOTHYROXINE SODIUM [Concomitant]
     Indication: DRUG USE FOR UNKNOWN INDICATION
     Route: 048
  10. PAROXETINE HCL [Concomitant]
     Indication: DRUG USE FOR UNKNOWN INDICATION
     Route: 048

REACTIONS (4)
  - COMA [None]
  - CONFUSIONAL STATE [None]
  - DUST INHALATION PNEUMOPATHY [None]
  - NEPHROGENIC DIABETES INSIPIDUS [None]
